FAERS Safety Report 8121705-5 (Version None)
Quarter: 2012Q1

REPORT INFORMATION
  Report Type: 
  Country: None (occurrence: None)
  Receive Date: 20120206
  Receipt Date: 20120127
  Transmission Date: 20120608
  Serious: Yes (Other)
  Sender: FDA-Public Use
  Company Number: AUR-APL-2011-06312

PATIENT
  Sex: Female

DRUGS (1)
  1. ALENDRONIC ACID(ALENDORIC ACID)(ALENDRONIC ACID) [Suspect]
     Indication: PRODUCT USED FOR UNKNOWN INDICATION
     Dosage: ORAL

REACTIONS (3)
  - CHOKING [None]
  - TOOTH DISORDER [None]
  - IRRITABILITY [None]
